FAERS Safety Report 9762147 (Version 1)
Quarter: 2013Q4

REPORT INFORMATION
  Report Type: Spontaneous
  Country: US (occurrence: US)
  Receive Date: 20131216
  Receipt Date: 20131216
  Transmission Date: 20140711
  Serious: No
  Sender: FDA-Public Use
  Company Number: US-BIOGENIDEC-2013BI105434

PATIENT
  Age: 54 Year
  Sex: Female

DRUGS (16)
  1. TECFIDERA [Suspect]
     Indication: MULTIPLE SCLEROSIS
     Route: 048
     Dates: start: 20130422
  2. ALLEGRA [Concomitant]
  3. BACLOFEN [Concomitant]
  4. VITAMIN C [Concomitant]
  5. ECOTRIN [Concomitant]
  6. TRAMADOL [Concomitant]
  7. DYAZIDE [Concomitant]
  8. AMLODIPINE [Concomitant]
  9. LIPITOR [Concomitant]
  10. OMEPRAZOLE [Concomitant]
  11. GABAPENTIN [Concomitant]
  12. SINGULAIR [Concomitant]
  13. THEOPHYLLINE [Concomitant]
  14. EFFEXOR [Concomitant]
  15. ZYPREXA [Concomitant]
  16. METFORMIN [Concomitant]

REACTIONS (1)
  - Pain in extremity [Not Recovered/Not Resolved]
